FAERS Safety Report 23071786 (Version 2)
Quarter: 2023Q4

REPORT INFORMATION
  Report Type: Report from Study
  Country: CH (occurrence: CH)
  Receive Date: 20231017
  Receipt Date: 20231023
  Transmission Date: 20240110
  Serious: Yes (Hospitalization)
  Sender: FDA-Public Use
  Company Number: CH-ABBVIE-5413107

PATIENT
  Sex: Male

DRUGS (2)
  1. CARBIDOPA\LEVODOPA [Suspect]
     Active Substance: CARBIDOPA\LEVODOPA
     Indication: Parkinson^s disease
     Dosage: MD: 8.0 ML, CRD: 3.0 ML/H, ED: 3.5  ML; CRN: 2.5 ML/H FREQUENCY TEXT: 24H THERAPY
     Route: 050
     Dates: start: 20230328, end: 20230913
  2. CARBIDOPA\LEVODOPA [Suspect]
     Active Substance: CARBIDOPA\LEVODOPA
     Dosage: MD: 8.0 ML, CRD: 3.2 ML/H, ED: 3.5  ML; CRN: 2.8 ML/H, FREQUENCY TEXT: 24H THERAPY
     Route: 050
     Dates: start: 20230913

REACTIONS (7)
  - Fall [Unknown]
  - Abdominal pain [Not Recovered/Not Resolved]
  - Moaning [Unknown]
  - Gastritis [Recovering/Resolving]
  - Rehabilitation therapy [Not Recovered/Not Resolved]
  - Hypophagia [Not Recovered/Not Resolved]
  - General physical health deterioration [Not Recovered/Not Resolved]

NARRATIVE: CASE EVENT DATE: 20230101
